FAERS Safety Report 9114846 (Version 2)
Quarter: 2013Q1

REPORT INFORMATION
  Report Type: Spontaneous
  Country: JP (occurrence: None)
  Receive Date: 20130131
  Receipt Date: 20130226
  Transmission Date: 20140127
  Serious: Yes (Hospitalization, Other)
  Sender: FDA-Public Use
  Company Number: ADR-2013-00135

PATIENT
  Age: 61 Year
  Sex: Male

DRUGS (1)
  1. GABALON INTRATHECAL [Suspect]

REACTIONS (1)
  - Subdural hygroma [None]
